FAERS Safety Report 19279976 (Version 3)
Quarter: 2021Q3

REPORT INFORMATION
  Report Type: Spontaneous
  Country: US (occurrence: US)
  Receive Date: 20210520
  Receipt Date: 20210802
  Transmission Date: 20211014
  Serious: Yes (Death, Other)
  Sender: FDA-Public Use
  Company Number: US-PFIZER INC-2020457350

PATIENT
  Age: 61 Year
  Sex: Male
  Weight: 97.52 kg

DRUGS (1)
  1. INSPRA [Suspect]
     Active Substance: EPLERENONE
     Dosage: 25 MG, 1X/DAY (90 TABLETS FOR 3 MONTHS)
     Route: 048

REACTIONS (1)
  - Death [Fatal]
